FAERS Safety Report 17462131 (Version 2)
Quarter: 2025Q2

REPORT INFORMATION
  Report Type: Report from Study
  Country: IT (occurrence: IT)
  Receive Date: 20200226
  Receipt Date: 20250621
  Transmission Date: 20250716
  Serious: Yes (Hospitalization, Other)
  Sender: AUROBINDO
  Company Number: IT-BAYER-2020-023154

PATIENT
  Age: 38 Year
  Sex: Female

DRUGS (6)
  1. METFORMIN HYDROCHLORIDE [Suspect]
     Active Substance: METFORMIN HYDROCHLORIDE
     Indication: Weight decreased
     Route: 065
  2. BUPROPION [Suspect]
     Active Substance: BUPROPION
     Indication: Weight decreased
     Route: 065
  3. CLORAZEPIC ACID [Suspect]
     Active Substance: CLORAZEPIC ACID
     Indication: Weight decreased
     Route: 065
  4. FLUOXETINE [Suspect]
     Active Substance: FLUOXETINE HYDROCHLORIDE
     Indication: Product used for unknown indication
     Route: 065
  5. PSEUDOEPHEDRINE [Suspect]
     Active Substance: PSEUDOEPHEDRINE
     Indication: Weight decreased
     Route: 065
  6. TIRATRICOL [Suspect]
     Active Substance: TIRATRICOL
     Indication: Weight decreased
     Route: 065

REACTIONS (1)
  - Acute coronary syndrome [Recovered/Resolved with Sequelae]
